FAERS Safety Report 21856988 (Version 1)
Quarter: 2023Q1

REPORT INFORMATION
  Report Type: Spontaneous
  Country: CA (occurrence: CA)
  Receive Date: 20230113
  Receipt Date: 20230113
  Transmission Date: 20230417
  Serious: Yes (Hospitalization)
  Sender: FDA-Public Use
  Company Number: CA-NOVOPROD-1010079

PATIENT
  Sex: Female

DRUGS (2)
  1. OZEMPIC [Suspect]
     Active Substance: SEMAGLUTIDE
     Dosage: 0.5 MG
  2. OZEMPIC [Suspect]
     Active Substance: SEMAGLUTIDE
     Indication: Product used for unknown indication
     Dosage: UNK

REACTIONS (6)
  - Fall [Unknown]
  - Head injury [Unknown]
  - Nausea [Unknown]
  - Dizziness [Unknown]
  - Vomiting [Unknown]
  - Pneumonia [Unknown]
